FAERS Safety Report 5039723-2 (Version None)
Quarter: 2006Q2

REPORT INFORMATION
  Report Type: 
  Country: None (occurrence: None)
  Receive Date: 20060601
  Receipt Date: 20060106
  Transmission Date: 20061013
  Serious: No
  Sender: FDA-Public Use
  Company Number: 2006PV006724

PATIENT
  Age: 57 Year
  Sex: Female

DRUGS (7)
  1. BYETTA [Suspect]
     Indication: DIABETES MELLITUS NON-INSULIN-DEPENDENT
     Dosage: 5 MCG;BID;SC
     Route: 058
     Dates: start: 20060105
  2. GLYBURIDE [Concomitant]
  3. LANTUS [Concomitant]
  4. HUMALOG [Concomitant]
  5. METFORMIN [Concomitant]
  6. PREVACID [Concomitant]
  7. INHALER [Concomitant]

REACTIONS (4)
  - DYSPEPSIA [None]
  - DYSPNOEA [None]
  - HYPERCHLORHYDRIA [None]
  - MOUTH ULCERATION [None]
